FAERS Safety Report 9169137 (Version 2)
Quarter: 2013Q4

REPORT INFORMATION
  Report Type: Spontaneous
  Country: GB (occurrence: GB)
  Receive Date: 20130318
  Receipt Date: 20131018
  Transmission Date: 20140711
  Serious: Yes (Other)
  Sender: FDA-Public Use
  Company Number: GB-GLAXOSMITHKLINE-B0875302A

PATIENT
  Age: 73 Year
  Sex: Male

DRUGS (1)
  1. ACITRETIN [Suspect]
     Indication: PRODUCT USED FOR UNKNOWN INDICATION
     Route: 048

REACTIONS (3)
  - Renal impairment [Unknown]
  - Glomerular filtration rate decreased [Recovered/Resolved]
  - Creatinine renal clearance decreased [Unknown]
